FAERS Safety Report 7920721-3 (Version None)
Quarter: 2011Q4

REPORT INFORMATION
  Report Type: 
  Country: None (occurrence: None)
  Receive Date: 20111117
  Receipt Date: 20111104
  Transmission Date: 20120403
  Serious: Yes (Hospitalization, Disabling, Other)
  Sender: FDA-Public Use
  Company Number: US-BAYER-2011-051285

PATIENT
  Age: 51 Year
  Sex: Female
  Weight: 72.562 kg

DRUGS (16)
  1. YAZ [Suspect]
     Indication: PREMENSTRUAL SYNDROME
  2. DROSPIRENONE AND ETHINYL ESTRADIOL [Suspect]
     Indication: ACNE
  3. DIPHENHYDRAMINE HCL CAP [Concomitant]
     Dosage: 2 TABLETS NIGHTLY
     Route: 048
  4. IMITREX [Concomitant]
     Dosage: ONE TABLET, PRN
     Route: 048
     Dates: start: 20080101
  5. DROSPIRENONE AND ETHINYL ESTRADIOL [Suspect]
     Indication: CONTRACEPTION
     Dosage: UNK
     Dates: start: 20080701, end: 20100211
  6. CETIRIZINE HCL [Concomitant]
     Dosage: 1 TABLET NIGHTLY
     Route: 048
  7. DROSPIRENONE AND ETHINYL ESTRADIOL [Suspect]
     Indication: PREMENSTRUAL SYNDROME
  8. SUMATRIPTAN [Concomitant]
     Dosage: 1 TABLET WITH HEADACHE
     Route: 048
     Dates: start: 20091001, end: 20110101
  9. YASMIN [Suspect]
     Indication: PREMENSTRUAL SYNDROME
  10. YASMIN [Suspect]
     Indication: ACNE
  11. YAZ [Suspect]
     Indication: CONTRACEPTION
     Dosage: UNK
     Dates: start: 20080201, end: 20080501
  12. OTC SLEEP AID [Concomitant]
  13. YASMIN [Suspect]
     Indication: CONTRACEPTION
     Dosage: UNK
     Dates: start: 20011001, end: 20080201
  14. MELATONIN [Concomitant]
     Dosage: 3 MG, NIGHTLY
     Route: 048
  15. YAZ [Suspect]
     Indication: ACNE
  16. ZYRTEC [Concomitant]

REACTIONS (6)
  - PULMONARY EMBOLISM [None]
  - CHOLELITHIASIS [None]
  - PULMONARY INFARCTION [None]
  - PAIN [None]
  - GALLBLADDER DISORDER [None]
  - EMOTIONAL DISTRESS [None]
